FAERS Safety Report 5509964-6 (Version None)
Quarter: 2007Q4

REPORT INFORMATION
  Report Type: 
  Country: None (occurrence: None)
  Receive Date: 20071107
  Receipt Date: 20071107
  Transmission Date: 20080405
  Serious: Yes (Other)
  Sender: FDA-Public Use
  Company Number: None

PATIENT
  Sex: Female
  Weight: 48.5349 kg

DRUGS (6)
  1. CHANTIX [Suspect]
     Indication: SMOKING CESSATION THERAPY
     Dosage: 0.5 MG ONE TAB A DAY PO
     Route: 048
     Dates: start: 20070801, end: 20070808
  2. PROMETHAZINE [Concomitant]
  3. VALIUM [Concomitant]
  4. IMITREX [Concomitant]
  5. TRAZODONE HCL [Concomitant]
  6. OMEPRAZOLE [Concomitant]

REACTIONS (3)
  - ABNORMAL DREAMS [None]
  - HALLUCINATION [None]
  - NIGHTMARE [None]
